FAERS Safety Report 4330249-8 (Version None)
Quarter: 2004Q1

REPORT INFORMATION
  Report Type: 
  Country: None (occurrence: None)
  Receive Date: 20040329
  Receipt Date: 20040319
  Transmission Date: 20041129
  Serious: Yes (Hospitalization)
  Sender: FDA-Public Use
  Company Number: DSA_24096_2004

PATIENT
  Age: 19 Year
  Sex: Female

DRUGS (3)
  1. LORAZEPAM [Suspect]
     Dosage: 10 MG ONCE PO
     Route: 048
     Dates: start: 20040308, end: 20040308
  2. DIPIPERON [Suspect]
     Dosage: 600 MG ONCE PO
     Route: 048
     Dates: start: 20040308, end: 20040308
  3. XIMOVAN [Suspect]
     Dosage: 120 MG ONCE PO
     Route: 048
     Dates: start: 20040308, end: 20040308

REACTIONS (3)
  - BLOOD POTASSIUM DECREASED [None]
  - INTENTIONAL OVERDOSE [None]
  - SOMNOLENCE [None]
